FAERS Safety Report 16885356 (Version 1)
Quarter: 2019Q4

REPORT INFORMATION
  Report Type: Spontaneous
  Country: US (occurrence: US)
  Receive Date: 20190809
  Receipt Date: 20190809
  Transmission Date: 20200122
  Serious: Yes (Life-Threatening, Other)
  Sender: FDA-Public Use
  Company Number: None

PATIENT
  Age: 50 Year
  Sex: Female
  Weight: 68.04 kg

DRUGS (2)
  1. GEODON [Suspect]
     Active Substance: ZIPRASIDONE HYDROCHLORIDE\ZIPRASIDONE MESYLATE
     Indication: SCHIZOPHRENIA
     Route: 048
     Dates: start: 20101001, end: 20110228
  2. ANTIHISTAMINES [Concomitant]
     Active Substance: ANTIHISTAMINES NOS

REACTIONS (5)
  - Dyspnoea [None]
  - Hypoaesthesia [None]
  - Submaxillary gland enlargement [None]
  - Oesophageal spasm [None]
  - Swollen tongue [None]

NARRATIVE: CASE EVENT DATE: 20110101
